FAERS Safety Report 8164367-3 (Version None)
Quarter: 2012Q1

REPORT INFORMATION
  Report Type: 
  Country: None (occurrence: None)
  Receive Date: 20120224
  Receipt Date: 20120217
  Transmission Date: 20120608
  Serious: Yes (Hospitalization)
  Sender: FDA-Public Use
  Company Number: PHHY2012ES014489

PATIENT
  Age: 85 Year
  Sex: Female

DRUGS (7)
  1. NEORAL [Interacting]
     Indication: PSORIASIS
     Dosage: 400 MG, DAILY
     Route: 048
     Dates: start: 20050101, end: 20111003
  2. NEORAL [Interacting]
     Dosage: 50 MG, DAILY
     Route: 048
     Dates: start: 20111003
  3. PANTOPRAZOLE [Concomitant]
  4. ATORVASTATIN [Concomitant]
  5. FUROSEMIDE [Concomitant]
  6. ENALAPRIL MALEATE [Suspect]
     Indication: HYPERTENSION
     Dosage: 80 MG, UNK
  7. ALDACTONE [Interacting]
     Indication: CARDIAC FAILURE
     Dosage: 50 MG, DAILY
     Route: 048
     Dates: start: 20090101, end: 20111003

REACTIONS (9)
  - TACHYARRHYTHMIA [None]
  - HYPERKALAEMIA [None]
  - BUNDLE BRANCH BLOCK RIGHT [None]
  - DRUG INTERACTION [None]
  - TOXICITY TO VARIOUS AGENTS [None]
  - RENAL FAILURE ACUTE [None]
  - NEPHROPATHY TOXIC [None]
  - CONDUCTION DISORDER [None]
  - HEART RATE DECREASED [None]
